FAERS Safety Report 6664437-2 (Version None)
Quarter: 2010Q2

REPORT INFORMATION
  Report Type: 
  Country: None (occurrence: None)
  Receive Date: 20100401
  Receipt Date: 20100330
  Transmission Date: 20101027
  Serious: Yes (Death, Hospitalization)
  Sender: FDA-Public Use
  Company Number: PHHO2010US02834

PATIENT
  Sex: Female
  Weight: 64.1 kg

DRUGS (14)
  1. EXELON [Suspect]
     Indication: DEMENTIA ALZHEIMER'S TYPE
     Dosage: 15CM2
     Route: 062
     Dates: start: 20091115, end: 20100212
  2. EXELON [Suspect]
     Indication: DEMENTIA ALZHEIMER'S TYPE
     Dosage: UNK
     Route: 048
     Dates: start: 20100213
  3. ROCEPHIN [Suspect]
  4. ARICEPT [Concomitant]
     Indication: DEMENTIA ALZHEIMER'S TYPE
  5. NAMENDA [Concomitant]
     Indication: DEMENTIA ALZHEIMER'S TYPE
  6. LIPITOR [Concomitant]
     Indication: HYPERLIPIDAEMIA
  7. CALCIUM [Concomitant]
     Indication: OSTEOPOROSIS
  8. VITAMIN D [Concomitant]
     Indication: OSTEOPOROSIS
  9. METOPROLOL TARTRATE [Concomitant]
     Indication: HYPERTENSION
  10. FERROUS SULFATE TAB [Concomitant]
  11. MULTI-VITAMIN [Concomitant]
  12. LISINOPRIL [Concomitant]
     Indication: HYPERTENSION
  13. ASPIRIN [Concomitant]
     Indication: PROPHYLAXIS
     Dosage: UNK
  14. ATORVASTATIN [Concomitant]
     Indication: HYPERLIPIDAEMIA

REACTIONS (16)
  - BLADDER OBSTRUCTION [None]
  - BLOOD OSMOLARITY DECREASED [None]
  - DEHYDRATION [None]
  - FAILURE TO THRIVE [None]
  - HYPOKALAEMIA [None]
  - HYPOMAGNESAEMIA [None]
  - HYPONATRAEMIA [None]
  - HYPOTENSION [None]
  - HYPOVOLAEMIA [None]
  - LETHARGY [None]
  - RENAL FAILURE ACUTE [None]
  - SEPSIS [None]
  - STAPHYLOCOCCAL INFECTION [None]
  - URINARY RETENTION [None]
  - URINARY TRACT INFECTION [None]
  - URTICARIA [None]
